FAERS Safety Report 12306098 (Version 1)
Quarter: 2016Q2

REPORT INFORMATION
  Report Type: Spontaneous
  Country: US (occurrence: US)
  Receive Date: 20160426
  Receipt Date: 20160426
  Transmission Date: 20160815
  Serious: Yes (Death, Hospitalization, Other)
  Sender: FDA-Public Use
  Company Number: US-CELGENEUS-USA-2016043580

PATIENT
  Age: 88 Year
  Sex: Male

DRUGS (12)
  1. REVLIMID [Suspect]
     Active Substance: LENALIDOMIDE
     Indication: PLASMA CELL LEUKAEMIA
  2. BORTEZOMIB [Suspect]
     Active Substance: BORTEZOMIB
     Indication: PLASMA CELL MYELOMA
     Route: 065
  3. BORTEZOMIB [Suspect]
     Active Substance: BORTEZOMIB
     Indication: PLASMA CELL LEUKAEMIA
  4. DEXAMETHASONE. [Suspect]
     Active Substance: DEXAMETHASONE
     Indication: CHRONIC MYELOID LEUKAEMIA
  5. IMATINIB [Suspect]
     Active Substance: IMATINIB
     Indication: PLASMA CELL LEUKAEMIA
  6. REVLIMID [Suspect]
     Active Substance: LENALIDOMIDE
     Indication: CHRONIC MYELOID LEUKAEMIA
  7. DEXAMETHASONE. [Suspect]
     Active Substance: DEXAMETHASONE
     Indication: PLASMA CELL MYELOMA
     Route: 065
  8. REVLIMID [Suspect]
     Active Substance: LENALIDOMIDE
     Indication: PLASMA CELL MYELOMA
     Route: 048
  9. IMATINIB [Suspect]
     Active Substance: IMATINIB
     Indication: PLASMA CELL MYELOMA
     Route: 065
  10. DEXAMETHASONE. [Suspect]
     Active Substance: DEXAMETHASONE
     Indication: PLASMA CELL LEUKAEMIA
  11. IMATINIB [Suspect]
     Active Substance: IMATINIB
     Indication: CHRONIC MYELOID LEUKAEMIA
  12. BORTEZOMIB [Suspect]
     Active Substance: BORTEZOMIB
     Indication: CHRONIC MYELOID LEUKAEMIA

REACTIONS (5)
  - Septic shock [Fatal]
  - Pneumonia [Fatal]
  - Leukocytosis [Unknown]
  - Thrombocytosis [Unknown]
  - Diarrhoea [Unknown]
